FAERS Safety Report 13349824 (Version 1)
Quarter: 2017Q1

REPORT INFORMATION
  Report Type: Spontaneous
  Country: GB (occurrence: None)
  Receive Date: 20170316
  Receipt Date: 20170316
  Transmission Date: 20170429
  Serious: Yes (Hospitalization)
  Sender: FDA-Public Use
  Company Number: GB2017K1468SPO

PATIENT
  Age: 74 Year
  Sex: Female

DRUGS (13)
  1. PREDNISOLONE. [Concomitant]
     Active Substance: PREDNISOLONE
  2. CYCLOPHOSPHAMIDE. [Concomitant]
     Active Substance: CYCLOPHOSPHAMIDE
  3. CEFALEXIN [Concomitant]
     Active Substance: CEPHALEXIN
  4. NYSTATIN (NYSTATIN) [Concomitant]
     Active Substance: NYSTATIN
  5. ALLOPURINOL. [Concomitant]
     Active Substance: ALLOPURINOL
  6. APIXABAN [Concomitant]
     Active Substance: APIXABAN
  7. LANSOPRAZOLE GENERIC (LANSOPRAZOLE) UNKNOWN [Suspect]
     Active Substance: LANSOPRAZOLE
     Dosage: DOSE - IN THE MORNING
     Route: 048
  8. ACICLOVIR [Concomitant]
     Active Substance: ACYCLOVIR
  9. RITUXIMAB (RITUXIMAB) [Concomitant]
     Active Substance: RITUXIMAB
  10. VINCRISTINE (VINCRISTINE) [Suspect]
     Active Substance: VINCRISTINE
     Indication: CHEMOTHERAPY
     Dosage: DOSE - UNKNOWN
     Route: 042
  11. DOXAZOSIN [Concomitant]
     Active Substance: DOXAZOSIN\DOXAZOSIN MESYLATE
  12. ENALAPRIL [Concomitant]
     Active Substance: ENALAPRIL
  13. ONDANSETRON [Concomitant]
     Active Substance: ONDANSETRON

REACTIONS (2)
  - Inappropriate antidiuretic hormone secretion [None]
  - Hyponatraemia [None]

NARRATIVE: CASE EVENT DATE: 20161203
